FAERS Safety Report 5228906-4 (Version None)
Quarter: 2007Q1

REPORT INFORMATION
  Report Type: 
  Country: None (occurrence: None)
  Receive Date: 20070205
  Receipt Date: 20070124
  Transmission Date: 20070707
  Serious: Yes (Hospitalization, Other)
  Sender: FDA-Public Use
  Company Number: 2007AC00172

PATIENT
  Age: 62 Year
  Sex: Male

DRUGS (10)
  1. ATENOLOL [Suspect]
  2. CLONIDINE [Interacting]
  3. VERAPAMIL [Interacting]
  4. IRBESARTAN [Concomitant]
  5. TERAZOSIN [Concomitant]
  6. FUROSEMIDE [Concomitant]
  7. METOLAZONE [Concomitant]
  8. INSULIN [Concomitant]
  9. NAPROXEN [Concomitant]
  10. POTASSIUM CHLORIDE [Concomitant]
     Dosage: 20 MEQ/D

REACTIONS (4)
  - DRUG INTERACTION [None]
  - RENAL FAILURE CHRONIC [None]
  - SINUS BRADYCARDIA [None]
  - SYNCOPE [None]
